FAERS Safety Report 20322249 (Version 3)
Quarter: 2022Q1

REPORT INFORMATION
  Report Type: Report from Study
  Country: US (occurrence: None)
  Receive Date: 20220111
  Receipt Date: 20220222
  Transmission Date: 20220423
  Serious: Yes (Life-Threatening, Hospitalization)
  Sender: FDA-Public Use
  Company Number: US-ROCHE-2994041

PATIENT
  Age: 80 Year
  Sex: Male

DRUGS (3)
  1. ATEZOLIZUMAB [Suspect]
     Active Substance: ATEZOLIZUMAB
     Indication: Pancreatic carcinoma
     Dosage: 5 ATEZOLIXUMAB INFUSIONS
     Route: 042
     Dates: start: 20210525, end: 20211012
  2. GEMCITABINE [Concomitant]
     Active Substance: GEMCITABINE
     Dates: start: 20210525, end: 20210803
  3. PACLITAXEL [Concomitant]
     Active Substance: PACLITAXEL
     Dates: start: 20210525, end: 20211012

REACTIONS (2)
  - Hypervolaemia [Recovered/Resolved]
  - Renal failure [Not Recovered/Not Resolved]

NARRATIVE: CASE EVENT DATE: 20211210
